FAERS Safety Report 4361475-X (Version None)
Quarter: 2004Q2

REPORT INFORMATION
  Report Type: 
  Country: None (occurrence: None)
  Receive Date: 20040517
  Receipt Date: 20040504
  Transmission Date: 20050107
  Serious: Yes (Other)
  Sender: FDA-Public Use
  Company Number: A03200401426

PATIENT
  Age: 68 Year
  Sex: Male

DRUGS (3)
  1. AMBIEN [Suspect]
     Indication: INSOMNIA
     Dosage: 10 MG - ORAL
     Route: 048
     Dates: start: 20040301, end: 20040401
  2. ATENOLOL [Concomitant]
  3. ATORVASTATIN CALCIUM [Concomitant]

REACTIONS (2)
  - AMNESIA [None]
  - ROAD TRAFFIC ACCIDENT [None]
